FAERS Safety Report 5297448-2 (Version None)
Quarter: 2007Q2

REPORT INFORMATION
  Report Type: 
  Country: None (occurrence: None)
  Receive Date: 20070406
  Receipt Date: 20070329
  Transmission Date: 20071010
  Serious: No
  Sender: FDA-Public Use
  Company Number: 2007-154260-NL

PATIENT
  Age: 23 Year
  Sex: Female

DRUGS (2)
  1. ETONOGESTREL [Suspect]
     Dosage: DF
     Dates: start: 20020101, end: 20050301
  2. ETONOGESTREL [Suspect]
     Dosage: DF
     Dates: start: 20050301

REACTIONS (4)
  - GALACTORRHOEA [None]
  - OLIGOMENORRHOEA [None]
  - OVARIAN GRANULOSA-THECA CELL TUMOUR [None]
  - PELVIC INFLAMMATORY DISEASE [None]
